FAERS Safety Report 16235110 (Version 1)
Quarter: 2019Q2

REPORT INFORMATION
  Report Type: Report from Study
  Country: EG (occurrence: EG)
  Receive Date: 20190424
  Receipt Date: 20190424
  Transmission Date: 20190711
  Serious: Yes (Other)
  Sender: FDA-Public Use
  Company Number: PHHY2019EG091823

PATIENT
  Age: 73 Year
  Sex: Female

DRUGS (8)
  1. CONCOR 5 PLUS [Concomitant]
     Indication: HYPERTENSION
     Dosage: 1 OT, QD (EVERY NIGHT)
     Route: 065
     Dates: start: 1999
  2. JANUMET [Concomitant]
     Active Substance: METFORMIN HYDROCHLORIDE\SITAGLIPTIN PHOSPHATE
     Indication: DIABETES MELLITUS
     Dosage: 2 DF (500/1000 2 TABS/ DAY), QD
     Route: 065
     Dates: start: 1999, end: 201902
  3. TRITACE [Concomitant]
     Active Substance: RAMIPRIL
     Indication: CARDIAC DISORDER
     Dosage: 1 OT, QD (EVERY MORNING)
     Route: 065
     Dates: start: 1999
  4. PLAVIX [Concomitant]
     Active Substance: CLOPIDOGREL BISULFATE
     Indication: CARDIAC DISORDER
     Dosage: 1 OT, QD
     Route: 065
     Dates: start: 2016
  5. VASTAREL [Concomitant]
     Active Substance: TRIMETAZIDINE DIHYDROCHLORIDE
     Indication: CARDIAC DISORDER
     Dosage: UNK
     Route: 065
     Dates: start: 201903
  6. JANUVIA [Concomitant]
     Active Substance: SITAGLIPTIN PHOSPHATE
     Indication: DIABETES MELLITUS
     Dosage: 1 OT, QD
     Route: 065
     Dates: start: 201902
  7. GLIVEC [Suspect]
     Active Substance: IMATINIB MESYLATE
     Indication: CHRONIC MYELOID LEUKAEMIA
     Dosage: 400 MG, QD
     Route: 048
     Dates: start: 2015, end: 2017
  8. TASIGNA [Suspect]
     Active Substance: NILOTINIB
     Indication: CHRONIC MYELOID LEUKAEMIA
     Dosage: 800 MG, QD
     Route: 048
     Dates: start: 2017

REACTIONS (5)
  - Middle ear inflammation [Recovering/Resolving]
  - Syncope [Recovering/Resolving]
  - Heart rate increased [Not Recovered/Not Resolved]
  - Cytogenetic analysis abnormal [Recovered/Resolved]
  - Dizziness [Recovering/Resolving]

NARRATIVE: CASE EVENT DATE: 2016
